FAERS Safety Report 10351043 (Version 2)
Quarter: 2014Q3

REPORT INFORMATION
  Report Type: Report from Study
  Country: JP (occurrence: JP)
  Receive Date: 20140730
  Receipt Date: 20140807
  Transmission Date: 20150326
  Serious: Yes (Life-Threatening)
  Sender: FDA-Public Use
  Company Number: JP-AMGEN-JPNCT2014056516

PATIENT
  Age: 47 Year
  Sex: Female
  Weight: 55 kg

DRUGS (25)
  1. EXCELASE [Concomitant]
     Dosage: UNK
  2. GASMOTIN [Concomitant]
     Active Substance: MOSAPRIDE CITRATE
     Dosage: UNK
  3. PREDNISOLONE. [Concomitant]
     Active Substance: PREDNISOLONE
     Dosage: UNK
  4. ADALAT [Concomitant]
     Active Substance: NIFEDIPINE
     Dosage: UNK
  5. NERIPROCT [Concomitant]
     Dosage: UNK
  6. ROMIPLOSTIM - KHK [Suspect]
     Active Substance: ROMIPLOSTIM
     Indication: IMMUNE THROMBOCYTOPENIC PURPURA
     Dosage: 4 MUG/KG, QWK
     Route: 058
     Dates: start: 20120830
  7. HYALEIN [Concomitant]
     Active Substance: HYALURONATE SODIUM
     Dosage: UNK
  8. RENAGEL [Concomitant]
     Active Substance: SEVELAMER HYDROCHLORIDE
     Dosage: UNK
  9. BIOFERMIN                          /01617201/ [Concomitant]
     Active Substance: BACILLUS SUBTILIS\LACTOBACILLUS ACIDOPHILUS\STREPTOCOCCUS FAECAIS
     Dosage: UNK
  10. AZUGAGURU T [Concomitant]
     Dosage: UNK
  11. PROMAC                             /01312301/ [Concomitant]
     Active Substance: NITROFURANTOIN
     Dosage: UNK
  12. POSTERISAN                         /00028601/ [Concomitant]
     Dosage: UNK
  13. PREDOHAN [Concomitant]
     Active Substance: PREDNISOLONE
     Dosage: UNK
  14. PRECIPITATED CALCIUM CARBONATE [Concomitant]
     Active Substance: CALCIUM CARBONATE
     Dosage: UNK
  15. SP                                 /00148702/ [Concomitant]
     Dosage: UNK
  16. MIYA-BM [Concomitant]
     Active Substance: CLOSTRIDIUM BUTYRICUM SPORES STRAIN M-55
     Dosage: UNK
  17. ROCALTROL [Concomitant]
     Active Substance: CALCITRIOL
     Dosage: UNK
  18. FESIN MITSUBISHI [Concomitant]
     Dosage: UNK
  19. NESP [Concomitant]
     Active Substance: DARBEPOETIN ALFA
     Dosage: UNK
     Route: 065
  20. ALFAROL [Concomitant]
     Active Substance: ALFACALCIDOL
     Dosage: UNK
  21. PREDONINE [Concomitant]
     Active Substance: PREDNISOLONE\PREDNISOLONE ACETATE\PREDNISOLONE SODIUM SUCCINATE
     Dosage: UNK
  22. NEORAL [Concomitant]
     Active Substance: CYCLOSPORINE
     Dosage: UNK
  23. CARDENALIN [Concomitant]
     Active Substance: DOXAZOSIN MESYLATE
     Dosage: UNK
  24. TAKEPRON [Concomitant]
     Active Substance: LANSOPRAZOLE
     Dosage: UNK
  25. ALLOID G [Concomitant]
     Active Substance: SODIUM ALGINATE
     Dosage: UNK
     Route: 048

REACTIONS (11)
  - Shunt stenosis [Recovering/Resolving]
  - Gastrointestinal infection [Recovering/Resolving]
  - Nausea [Recovering/Resolving]
  - Nasopharyngitis [Recovering/Resolving]
  - Renal haemorrhage [Recovered/Resolved]
  - White blood cell count increased [Recovered/Resolved]
  - Abdominal lymphadenopathy [Not Recovered/Not Resolved]
  - Hypoaesthesia [Recovering/Resolving]
  - Pyrexia [Recovering/Resolving]
  - Salivary gland pain [Recovering/Resolving]
  - Constipation [Recovering/Resolving]

NARRATIVE: CASE EVENT DATE: 20120830
